FAERS Safety Report 8578463-X (Version None)
Quarter: 2012Q3

REPORT INFORMATION
  Report Type: 
  Country: None (occurrence: None)
  Receive Date: 20120808
  Receipt Date: 20120727
  Transmission Date: 20120928
  Serious: Yes (Hospitalization)
  Sender: FDA-Public Use
  Company Number: CA-JNJFOC-20120707214

PATIENT
  Sex: Male
  Weight: 78.93 kg

DRUGS (2)
  1. REMICADE [Suspect]
     Indication: CROHN'S DISEASE
     Route: 042
     Dates: start: 20090521
  2. WARFARIN SODIUM [Concomitant]
     Indication: ANGIOPLASTY
     Route: 065
     Dates: start: 20120401

REACTIONS (5)
  - SPLENIC INFARCTION [None]
  - PORTAL VEIN THROMBOSIS [None]
  - INTESTINAL OBSTRUCTION [None]
  - MESENTERIC VEIN THROMBOSIS [None]
  - BILE DUCT OBSTRUCTION [None]
